FAERS Safety Report 5929820-9 (Version None)
Quarter: 2008Q4

REPORT INFORMATION
  Report Type: 
  Country: None (occurrence: None)
  Receive Date: 20081024
  Receipt Date: 20081020
  Transmission Date: 20090506
  Serious: Yes (Hospitalization)
  Sender: FDA-Public Use
  Company Number: FR-BRISTOL-MYERS SQUIBB COMPANY-14378442

PATIENT
  Age: 45 Year
  Sex: Female

DRUGS (11)
  1. ORENCIA [Suspect]
     Indication: SYSTEMIC LUPUS ERYTHEMATOSUS
  2. CELLCEPT [Suspect]
     Indication: SYSTEMIC LUPUS ERYTHEMATOSUS
     Dosage: 2 TABS
     Route: 048
     Dates: start: 20080101
  3. IMUREL [Suspect]
     Indication: PROTEINURIA
     Dosage: 2 TABS
     Route: 048
     Dates: start: 20080430, end: 20080603
  4. ORACILLINE [Suspect]
     Route: 042
     Dates: start: 20080501
  5. CORTANCYL [Concomitant]
     Indication: SYSTEMIC LUPUS ERYTHEMATOSUS
  6. INIPOMP [Concomitant]
  7. CACIT D3 [Concomitant]
  8. ACTONEL [Concomitant]
  9. TRIATEC [Concomitant]
  10. LYRICA [Concomitant]
  11. LASIX [Concomitant]

REACTIONS (1)
  - NEUTROPENIA [None]
